FAERS Safety Report 19391173 (Version 3)
Quarter: 2023Q1

REPORT INFORMATION
  Report Type: Report from Study
  Country: NL (occurrence: NL)
  Receive Date: 20210608
  Receipt Date: 20230124
  Transmission Date: 20230418
  Serious: Yes (Hospitalization)
  Sender: FDA-Public Use
  Company Number: NL-MYLANLABS-2021M1032090

PATIENT
  Sex: Female

DRUGS (1)
  1. GLATIRAMER ACETATE [Suspect]
     Active Substance: GLATIRAMER ACETATE
     Indication: Relapsing-remitting multiple sclerosis
     Dosage: 40 MILLIGRAM, 3XW(3.00 X PER WEEK)
     Route: 058
     Dates: start: 20200402

REACTIONS (2)
  - Surgery [Unknown]
  - Fat tissue decreased [Recovering/Resolving]

NARRATIVE: CASE EVENT DATE: 20230119
